FAERS Safety Report 19944705 (Version 1)
Quarter: 2021Q4

REPORT INFORMATION
  Report Type: Spontaneous
  Country: BR (occurrence: BR)
  Receive Date: 20211011
  Receipt Date: 20211011
  Transmission Date: 20220303
  Serious: Yes (Life-Threatening, Other)
  Sender: FDA-Public Use
  Company Number: BR-SA-SAC20210126000467

PATIENT
  Age: 77 Year
  Sex: Female
  Weight: 77 kg

DRUGS (20)
  1. ZOLPIDEM TARTRATE [Suspect]
     Active Substance: ZOLPIDEM TARTRATE
     Indication: Insomnia
     Dosage: 1 DF, HS
     Route: 048
     Dates: start: 2020, end: 202106
  2. DEFLAZACORT [Concomitant]
     Active Substance: DEFLAZACORT
     Indication: Arthritis
     Dosage: 1 DF, QOD (BEGINNING 3-4 YEARS )
     Route: 048
  3. DIOVAN [Concomitant]
     Active Substance: VALSARTAN
     Indication: Blood pressure abnormal
     Dosage: 1 DF, QD (IN THE AFTERNOON - STARTED LESS THAN 1 YEAR AGO )
     Route: 048
  4. SYNTHROID [Concomitant]
     Active Substance: LEVOTHYROXINE SODIUM
     Indication: Thyroid disorder
     Dosage: 1 DF, QD (FASTING)
     Route: 048
     Dates: start: 2000
  5. VITAMIN D NOS [Concomitant]
     Active Substance: VITAMIN D NOS
     Indication: COVID-19
     Dosage: 1 DF, QD (BEGINNING SINCE THE PANDEMIC BEGAN )
     Route: 048
  6. VITAMIN C [Concomitant]
     Active Substance: ASCORBIC ACID
     Indication: COVID-19
     Dosage: 1 DF, QD (BEGINNING SINCE THE PANDEMIC BEGAN
     Route: 048
  7. GLIFAGE [Concomitant]
     Active Substance: METFORMIN HYDROCHLORIDE
     Indication: Diabetes mellitus
     Dosage: 1 DF, BID (STARTED 2 MONTHS AGO )
     Route: 048
  8. ALPRAZOLAM [Concomitant]
     Active Substance: ALPRAZOLAM
     Indication: Feeling of relaxation
     Dosage: UNK, BID
     Dates: start: 202108
  9. LAXATIVOS [Concomitant]
  10. DOMPERIDONE [Concomitant]
     Active Substance: DOMPERIDONE
     Dosage: 10 MG, QD
     Route: 048
     Dates: start: 2021
  11. ALPRAZOLAM [Concomitant]
     Active Substance: ALPRAZOLAM
     Indication: Feeling of relaxation
     Dosage: UNK, PRN
     Route: 048
     Dates: start: 202109
  12. ALPRAZOLAM [Concomitant]
     Active Substance: ALPRAZOLAM
     Indication: Sleep disorder
  13. FUROSEMIDE [Concomitant]
     Active Substance: FUROSEMIDE
     Indication: Hypertension
     Dosage: 2 TO 3 TIMES A MONTH
     Route: 048
     Dates: start: 2019
  14. FUROSEMIDE [Concomitant]
     Active Substance: FUROSEMIDE
     Indication: Urinary tract disorder
  15. MINERALS\VITAMINS [Concomitant]
     Active Substance: MINERALS\VITAMINS
     Indication: Supplementation therapy
     Dosage: 1 DF, QD
     Route: 048
     Dates: start: 2020
  16. FRONT [Concomitant]
     Indication: Feeling of relaxation
     Dosage: IN USE
     Route: 048
     Dates: start: 202108
  17. METFORMIN HYDROCHLORIDE [Concomitant]
     Active Substance: METFORMIN HYDROCHLORIDE
     Indication: Glucose tolerance impaired
     Dosage: IN USE
     Route: 048
     Dates: start: 2021
  18. PHARMATON [MINERALS NOS;VITAMINS NOS] [Concomitant]
     Indication: Supplementation therapy
     Dosage: IN USE
     Route: 048
     Dates: start: 2020
  19. BISACODYL [Concomitant]
     Active Substance: BISACODYL
     Indication: Gastrointestinal motility disorder
     Dosage: 4 CAPSULES AFTER LUNCH; IN USE
     Route: 048
     Dates: start: 2021
  20. NOCTAL [ESTAZOLAM] [Concomitant]

REACTIONS (12)
  - Intestinal obstruction [Not Recovered/Not Resolved]
  - Suicide attempt [Recovered/Resolved with Sequelae]
  - Fall [Recovered/Resolved with Sequelae]
  - Injury [Recovered/Resolved with Sequelae]
  - Euphoric mood [Recovered/Resolved]
  - Depression [Recovering/Resolving]
  - Pain [Unknown]
  - Gallbladder neoplasm [Not Recovered/Not Resolved]
  - Weight decreased [Not Recovered/Not Resolved]
  - Paraesthesia [Recovering/Resolving]
  - Abdominal discomfort [Unknown]
  - Abnormal behaviour [Not Recovered/Not Resolved]

NARRATIVE: CASE EVENT DATE: 20190101
